FAERS Safety Report 5341094-9 (Version None)
Quarter: 2007Q2

REPORT INFORMATION
  Report Type: 
  Country: None (occurrence: None)
  Receive Date: 20070405
  Receipt Date: 20060628
  Transmission Date: 20071010
  Serious: Yes (Hospitalization)
  Sender: FDA-Public Use
  Company Number: 2006-02650

PATIENT
  Age: 51 Year
  Sex: Female
  Weight: 71.2 kg

DRUGS (1)
  1. FERRLECIT [Suspect]
     Indication: IRON DEFICIENCY ANAEMIA
     Dosage: 250 MG/250 NS OVER 60 00 MIN, INTRAVENOUS
     Route: 042
     Dates: start: 20060605

REACTIONS (6)
  - ANAPHYLACTIC REACTION [None]
  - CHEST PAIN [None]
  - DYSPNOEA [None]
  - HYPOTENSION [None]
  - RASH [None]
  - RESPIRATORY DISTRESS [None]
